FAERS Safety Report 17863433 (Version 1)
Quarter: 2020Q2

REPORT INFORMATION
  Report Type: Spontaneous
  Country: US (occurrence: US)
  Receive Date: 20200605
  Receipt Date: 20200605
  Transmission Date: 20200714
  Serious: Yes (Other)
  Sender: FDA-Public Use
  Company Number: US-ROCHE-2615206

PATIENT
  Sex: Female

DRUGS (5)
  1. ZOLPIDEM [Concomitant]
     Active Substance: ZOLPIDEM TARTRATE
     Route: 065
  2. TIMOLOL. [Concomitant]
     Active Substance: TIMOLOL
     Dosage: SOL 0.5%
     Route: 065
  3. ESBRIET [Suspect]
     Active Substance: PIRFENIDONE
     Indication: IDIOPATHIC PULMONARY FIBROSIS
     Route: 048
     Dates: start: 20190726
  4. BIOTIN [Concomitant]
     Active Substance: BIOTIN
     Route: 065
  5. TOBRAMYCIN. [Concomitant]
     Active Substance: TOBRAMYCIN
     Dosage: 300 MG/5 ML
     Route: 065

REACTIONS (2)
  - Vomiting [Not Recovered/Not Resolved]
  - Pulmonary hypertension [Not Recovered/Not Resolved]
